FAERS Safety Report 11451095 (Version 1)
Quarter: 2015Q3

REPORT INFORMATION
  Report Type: Spontaneous
  Country: US (occurrence: US)
  Receive Date: 20150903
  Receipt Date: 20150903
  Transmission Date: 20151125
  Serious: No
  Sender: FDA-Public Use
  Company Number: US-ROCHE-1054325

PATIENT
  Age: 59 Year
  Sex: Female

DRUGS (1)
  1. PEGASYS [Suspect]
     Active Substance: PEGINTERFERON ALFA-2A
     Indication: PRODUCT USED FOR UNKNOWN INDICATION
     Route: 065

REACTIONS (12)
  - Vision blurred [Unknown]
  - Visual impairment [Unknown]
  - Epistaxis [Unknown]
  - Dizziness [Unknown]
  - Migraine [Unknown]
  - Influenza like illness [Unknown]
  - Dyspnoea [Unknown]
  - Nausea [Unknown]
  - Anaemia [Unknown]
  - Depression [Unknown]
  - Fatigue [Unknown]
  - Rash [Unknown]
